FAERS Safety Report 15347844 (Version 1)
Quarter: 2018Q4

REPORT INFORMATION
  Report Type: Report from Study
  Country: IT (occurrence: IT)
  Receive Date: 20180904
  Receipt Date: 20180904
  Transmission Date: 20190204
  Serious: Yes (Other)
  Sender: FDA-Public Use
  Company Number: IT-TEVA-2018-IT-951231

PATIENT
  Age: 75 Year
  Sex: Male
  Weight: 60 kg

DRUGS (4)
  1. ADRIBLASTINA 50 MG/25 ML SOLUZIONE INIETTABILE PER USO ENDOVENOSO [Suspect]
     Active Substance: DOXORUBICIN HYDROCHLORIDE
     Indication: NON-HODGKIN^S LYMPHOMA
     Route: 042
     Dates: start: 20180710, end: 20180710
  2. ENDOXAN BAXTER 1 G POLVERE PER SOLUZIONE INIETTABILE [Suspect]
     Active Substance: CYCLOPHOSPHAMIDE
     Indication: NON-HODGKIN^S LYMPHOMA
     Route: 042
     Dates: start: 20180710, end: 20180710
  3. MABTHERA 1400 MG SOLUTION FOR SUBCUTANEOUS INJECTION [Concomitant]
     Indication: NON-HODGKIN^S LYMPHOMA
     Route: 058
     Dates: start: 20180710, end: 20180710
  4. VINCRISTINA TEVA ITALIA 1 MG/ML SOLUZIONE INIETTABILE [Suspect]
     Active Substance: VINCRISTINE SULFATE
     Indication: NON-HODGKIN^S LYMPHOMA
     Route: 040
     Dates: start: 20180710, end: 20180710

REACTIONS (2)
  - Eschar [Recovering/Resolving]
  - Administration site extravasation [Recovering/Resolving]

NARRATIVE: CASE EVENT DATE: 20180710
